FAERS Safety Report 5758624-5 (Version None)
Quarter: 2008Q2

REPORT INFORMATION
  Report Type: 
  Country: None (occurrence: None)
  Receive Date: 20080604
  Receipt Date: 20080528
  Transmission Date: 20081010
  Serious: Yes (Hospitalization)
  Sender: FDA-Public Use
  Company Number: US-AVENTIS-200815002GDDC

PATIENT
  Age: 78 Year
  Sex: Male

DRUGS (3)
  1. DOCETAXEL [Suspect]
     Indication: PROSTATE CANCER
     Route: 042
     Dates: start: 20080318
  2. MONOCLONAL ANTIBODIES [Suspect]
     Indication: PROSTATE CANCER
     Route: 042
     Dates: start: 20080318
  3. PREDNISONE TAB [Suspect]
     Indication: PROSTATE CANCER
     Route: 048
     Dates: start: 20080318, end: 20080328

REACTIONS (6)
  - CHEST PAIN [None]
  - DYSPNOEA [None]
  - HYPERGLYCAEMIA [None]
  - LEUKOPENIA [None]
  - PALPITATIONS [None]
  - TROPONIN I [None]
